FAERS Safety Report 20696217 (Version 1)
Quarter: 2022Q2

REPORT INFORMATION
  Report Type: Spontaneous
  Country: US (occurrence: US)
  Receive Date: 20220411
  Receipt Date: 20220411
  Transmission Date: 20220720
  Serious: Yes (Hospitalization, Other)
  Sender: FDA-Public Use
  Company Number: US-DUCHESNAY-2022US000002

PATIENT
  Age: 69 Year
  Sex: Female

DRUGS (2)
  1. OSPHENA [Suspect]
     Active Substance: OSPEMIFENE
     Indication: Vulvovaginal dryness
     Dosage: 1 TABLET IN THE MORNING ONCE A DAY
     Route: 048
     Dates: start: 2021, end: 20220102
  2. OSPHENA [Suspect]
     Active Substance: OSPEMIFENE
     Indication: Dyspareunia
     Dosage: 1 TABLET IN THE MORNING ONCE A DAY
     Route: 048
     Dates: end: 202111

REACTIONS (2)
  - Pulmonary embolism [Recovered/Resolved]
  - Lower respiratory tract infection [Unknown]

NARRATIVE: CASE EVENT DATE: 20211217
